FAERS Safety Report 7874341-X (Version None)
Quarter: 2011Q4

REPORT INFORMATION
  Report Type: 
  Country: None (occurrence: None)
  Receive Date: 20111030
  Receipt Date: 20110518
  Transmission Date: 20120403
  Serious: No
  Sender: FDA-Public Use
  Company Number: US-AMGEN-USASP2011003944

PATIENT
  Age: 57 Year
  Sex: Male

DRUGS (1)
  1. ENBREL [Suspect]
     Indication: RHEUMATOID ARTHRITIS
     Dosage: 50 MG, QWK
     Dates: start: 20030201

REACTIONS (10)
  - CARPAL TUNNEL SYNDROME [None]
  - BONE PAIN [None]
  - INFLUENZA [None]
  - RESPIRATORY DISORDER [None]
  - INFLUENZA LIKE ILLNESS [None]
  - ACCIDENT AT WORK [None]
  - SURGERY [None]
  - INCREASED TENDENCY TO BRUISE [None]
  - ANIMAL BITE [None]
  - NECK PAIN [None]
